FAERS Safety Report 5620455-4 (Version None)
Quarter: 2008Q1

REPORT INFORMATION
  Report Type: 
  Country: None (occurrence: None)
  Receive Date: 20080208
  Receipt Date: 20080205
  Transmission Date: 20080703
  Serious: Yes (Death)
  Sender: FDA-Public Use
  Company Number: GB-BOEHRINGER INGELHEIM GMBH, GERMANY-2008-UK-00537UK

PATIENT
  Sex: Male
  Weight: 80 kg

DRUGS (5)
  1. MOBIC [Suspect]
     Indication: OSTEOARTHRITIS
     Route: 048
     Dates: start: 20060301
  2. AMITRIPTYLINE HCL [Concomitant]
     Indication: PAIN
     Route: 048
     Dates: start: 20071001
  3. OXYCODONE HCL [Concomitant]
     Indication: PAIN
     Route: 048
     Dates: start: 20070901
  4. PARACETAMOL [Concomitant]
     Indication: PAIN
     Route: 048
     Dates: start: 20060301
  5. TAMADOL [Concomitant]
     Indication: PAIN
     Route: 048
     Dates: start: 20060301

REACTIONS (1)
  - DUODENAL ULCER HAEMORRHAGE [None]
